FAERS Safety Report 5651646-4 (Version None)
Quarter: 2008Q1

REPORT INFORMATION
  Report Type: 
  Country: None (occurrence: None)
  Receive Date: 20080305
  Receipt Date: 20080226
  Transmission Date: 20080703
  Serious: No
  Sender: FDA-Public Use
  Company Number: JP-BAXTER-2008BH001729

PATIENT
  Age: 64 Year
  Sex: Female

DRUGS (1)
  1. BUMINATE 5% [Suspect]
     Indication: VASCULAR GRAFT
     Dosage: DOSE UNIT:UNKNOWN
     Route: 065
     Dates: start: 19920301

REACTIONS (1)
  - HEPATITIS C POSITIVE [None]
